FAERS Safety Report 4774327-8 (Version None)
Quarter: 2005Q3

REPORT INFORMATION
  Report Type: 
  Country: None (occurrence: None)
  Receive Date: 20050914
  Receipt Date: 20050228
  Transmission Date: 20060218
  Serious: Yes (Hospitalization)
  Sender: FDA-Public Use
  Company Number: 163-20785-05030092

PATIENT
  Age: 68 Year
  Sex: Male
  Weight: 84 kg

DRUGS (6)
  1. THALOMID [Suspect]
     Indication: MULTIPLE MYELOMA
     Dosage: 50-150 MG, QD, ORAL
     Route: 048
     Dates: start: 20021121, end: 20030630
  2. THALOMID [Suspect]
     Indication: MULTIPLE MYELOMA
     Dosage: 50-150 MG, QD, ORAL
     Route: 048
     Dates: start: 20030729
  3. PREDNISONE [Suspect]
     Indication: MULTIPLE MYELOMA
     Dosage: 50 -150 MG, QOD
     Dates: start: 20030729
  4. DOXIL [Suspect]
     Indication: MULTIPLE MYELOMA
     Dosage: 79-83 MG, INTRAVENOUS
     Route: 042
     Dates: start: 20021121, end: 20030630
  5. VINCRISTINE [Suspect]
     Indication: MULTIPLE MYELOMA
     Dosage: 2 MG, INTRAVENOUS
     Dates: start: 20021102, end: 20030630
  6. DECADRON [Suspect]
     Indication: MULTIPLE MYELOMA
     Dosage: 40 MG, QD, ORAL
     Route: 048
     Dates: start: 20021121, end: 20030630

REACTIONS (2)
  - PNEUMONIA [None]
  - STREPTOCOCCAL BACTERAEMIA [None]
